FAERS Safety Report 15234150 (Version 1)
Quarter: 2018Q3

REPORT INFORMATION
  Report Type: Spontaneous
  Country: DE (occurrence: DE)
  Receive Date: 20180802
  Receipt Date: 20180802
  Transmission Date: 20181010
  Serious: Yes (Other)
  Sender: FDA-Public Use
  Company Number: DE-MYLANLABS-2018M1056546

PATIENT

DRUGS (3)
  1. PROTIONAMIDE [Concomitant]
     Active Substance: PROTIONAMIDE
     Indication: LEPROMATOUS LEPROSY
     Dosage: UNK
     Route: 064
  2. ISONIAZID. [Concomitant]
     Active Substance: ISONIAZID
     Indication: LEPROMATOUS LEPROSY
     Dosage: UNK
     Route: 064
  3. RIFAMPICIN [Suspect]
     Active Substance: RIFAMPIN
     Indication: LEPROMATOUS LEPROSY
     Dosage: UNK
     Route: 064

REACTIONS (2)
  - Haemorrhagic disease of newborn [Unknown]
  - Foetal exposure during pregnancy [Unknown]
